FAERS Safety Report 17712575 (Version 1)
Quarter: 2020Q2

REPORT INFORMATION
  Report Type: Spontaneous
  Country: IT (occurrence: IT)
  Receive Date: 20200427
  Receipt Date: 20200427
  Transmission Date: 20200714
  Serious: Yes (Hospitalization)
  Sender: FDA-Public Use
  Company Number: NVSC2020IT111218

PATIENT
  Age: 50 Year
  Sex: Male

DRUGS (3)
  1. MYCOPHENOLATE MOFETIL. [Suspect]
     Active Substance: MYCOPHENOLATE MOFETIL
     Indication: RENAL TRANSPLANT
     Dosage: 1 DF, QD
     Route: 048
     Dates: start: 20190802, end: 20191203
  2. TACROLIMUS MONOHYDRATE [Concomitant]
     Active Substance: TACROLIMUS
     Indication: PRODUCT USED FOR UNKNOWN INDICATION
     Dosage: UNK
     Route: 065
  3. VALCYTE [Suspect]
     Active Substance: VALGANCICLOVIR HYDROCHLORIDE
     Indication: CELL-MEDIATED IMMUNE DEFICIENCY
     Dosage: 1 DF, QD
     Route: 048
     Dates: start: 20191009, end: 20191203

REACTIONS (6)
  - Intestinal haemorrhage [Recovering/Resolving]
  - Oropharyngeal pain [Recovering/Resolving]
  - Oral disorder [Recovering/Resolving]
  - Hypotension [Recovering/Resolving]
  - Aphthous ulcer [Recovering/Resolving]
  - Anaemia [Recovering/Resolving]

NARRATIVE: CASE EVENT DATE: 20191203
